FAERS Safety Report 18303831 (Version 1)
Quarter: 2020Q3

REPORT INFORMATION
  Report Type: Spontaneous
  Country: US (occurrence: US)
  Receive Date: 20200923
  Receipt Date: 20200923
  Transmission Date: 20201103
  Serious: Yes (Other)
  Sender: FDA-Public Use
  Company Number: US-BAYER-2020-198316

PATIENT
  Sex: Female

DRUGS (26)
  1. OMEPRAZOLE. [Concomitant]
     Active Substance: OMEPRAZOLE
  2. ATORVASTATIN [Concomitant]
     Active Substance: ATORVASTATIN
  3. PROCHLOR [Concomitant]
  4. TYLENOL PM [Concomitant]
     Active Substance: ACETAMINOPHEN\DIPHENHYDRAMINE
  5. BACLOFEN. [Concomitant]
     Active Substance: BACLOFEN
  6. DULOXETINE. [Concomitant]
     Active Substance: DULOXETINE
  7. EPINEPHRINE. [Concomitant]
     Active Substance: EPINEPHRINE
  8. ALBUTEROL;IPRATROPIUM [Concomitant]
     Active Substance: ALBUTEROL\IPRATROPIUM
  9. AIMOVIG [Concomitant]
     Active Substance: ERENUMAB-AOOE
  10. BUSPIRONE [Concomitant]
     Active Substance: BUSPIRONE HYDROCHLORIDE
  11. LISINOPRIL. [Concomitant]
     Active Substance: LISINOPRIL
  12. COMBIVENT RESPIMAT [Concomitant]
     Active Substance: ALBUTEROL SULFATE\IPRATROPIUM BROMIDE
  13. COLECALCIFEROL [Concomitant]
     Active Substance: CHOLECALCIFEROL
  14. IBUPROFEN. [Concomitant]
     Active Substance: IBUPROFEN
  15. GABAPENTIN. [Concomitant]
     Active Substance: GABAPENTIN
  16. ONDANSETRON [Concomitant]
     Active Substance: ONDANSETRON
  17. SALBUTAMOL [Concomitant]
     Active Substance: ALBUTEROL
  18. CLONAZEPAM. [Concomitant]
     Active Substance: CLONAZEPAM
  19. ERENUMAB [Concomitant]
     Active Substance: ERENUMAB
  20. ALEVE [Suspect]
     Active Substance: NAPROXEN SODIUM
     Indication: PRODUCT USED FOR UNKNOWN INDICATION
     Dosage: UNK
  21. RIZATRIPTAN. [Concomitant]
     Active Substance: RIZATRIPTAN
  22. TRAZODONE [Concomitant]
     Active Substance: TRAZODONE HYDROCHLORIDE
  23. TYLENOL [Concomitant]
     Active Substance: ACETAMINOPHEN
  24. DUONEB [Concomitant]
     Active Substance: ALBUTEROL SULFATE\IPRATROPIUM BROMIDE
  25. MELATONIN [Concomitant]
     Active Substance: MELATONIN
  26. DITROPAN [Concomitant]
     Active Substance: OXYBUTYNIN CHLORIDE

REACTIONS (2)
  - Anaphylactic reaction [Unknown]
  - Drug hypersensitivity [Unknown]
